FAERS Safety Report 7953889-3 (Version None)
Quarter: 2011Q4

REPORT INFORMATION
  Report Type: 
  Country: None (occurrence: None)
  Receive Date: 20111202
  Receipt Date: 20111122
  Transmission Date: 20120403
  Serious: Yes (Hospitalization)
  Sender: FDA-Public Use
  Company Number: US-ABBOTT-11P-163-0876615-00

PATIENT
  Sex: Male

DRUGS (7)
  1. HUMIRA [Suspect]
     Dosage: BASELINE
     Route: 058
  2. HUMIRA [Suspect]
     Dosage: COMMERCIAL HUMIRA
     Route: 058
     Dates: start: 20070901
  3. HUMIRA [Suspect]
     Route: 058
     Dates: end: 20100310
  4. CIMZIA [Concomitant]
     Indication: RHEUMATOID ARTHRITIS
  5. HUMIRA [Suspect]
     Indication: CROHN'S DISEASE
     Route: 058
  6. CIMZIA [Concomitant]
     Indication: CROHN'S DISEASE
  7. HUMIRA [Suspect]
     Dosage: WEEK 2
     Route: 058

REACTIONS (1)
  - ARTHRALGIA [None]
